FAERS Safety Report 6774078-4 (Version None)
Quarter: 2010Q2

REPORT INFORMATION
  Report Type: 
  Country: None (occurrence: None)
  Receive Date: 20100616
  Receipt Date: 20100616
  Transmission Date: 20101027
  Serious: No
  Sender: FDA-Public Use
  Company Number: None

PATIENT
  Age: 53 Year
  Sex: Female
  Weight: 95.2554 kg

DRUGS (3)
  1. HALFLYTELY [Suspect]
     Indication: COLONOSCOPY
     Dosage: 8 OZ EVERY 10 MINUTES PO
     Route: 048
     Dates: start: 20100224, end: 20100224
  2. HALFLYTELY [Suspect]
     Indication: PREOPERATIVE CARE
     Dosage: 8 OZ EVERY 10 MINUTES PO
     Route: 048
     Dates: start: 20100224, end: 20100224
  3. BISACODYL [Suspect]

REACTIONS (3)
  - FEELING HOT [None]
  - HYPERHIDROSIS [None]
  - RASH [None]
